FAERS Safety Report 17980392 (Version 1)
Quarter: 2020Q3

REPORT INFORMATION
  Report Type: Spontaneous
  Country: CA (occurrence: CA)
  Receive Date: 20200703
  Receipt Date: 20200703
  Transmission Date: 20201103
  Serious: Yes (Death, Other)
  Sender: FDA-Public Use
  Company Number: CA-BAXTER-2020BAX013442

PATIENT
  Age: 80 Year
  Sex: Male
  Weight: 69.1 kg

DRUGS (39)
  1. 50% DEXTROSE INJ, USP [Suspect]
     Active Substance: DEXTROSE
     Indication: NUTRITIONAL SUPPLEMENTATION
     Dosage: AS DIRECTED
     Route: 042
     Dates: start: 20200601
  2. HEPARIN SODIUM AND 0.9% SODIUM CHLORIDE INJECTION [Suspect]
     Active Substance: HEPARIN SODIUM\SODIUM CHLORIDE
     Route: 042
     Dates: start: 20200602, end: 20200602
  3. ACETAMINOPHEN. [Suspect]
     Active Substance: ACETAMINOPHEN
     Indication: ANALGESIC THERAPY
     Route: 048
     Dates: start: 20200527
  4. INSULIN DEGLUDEC [Suspect]
     Active Substance: INSULIN DEGLUDEC
     Indication: DIABETES MELLITUS
     Dosage: DOSE: 22 UNITS,?AT BEDTIME
     Route: 058
     Dates: start: 20200527
  5. POLYETHYLENE GLYCOL [Suspect]
     Active Substance: POLYETHYLENE GLYCOLS
     Indication: CONSTIPATION
     Dosage: EVERY EVENING
     Route: 048
     Dates: start: 20200601
  6. AMIODARONE [Suspect]
     Active Substance: AMIODARONE
     Indication: DRUG THERAPY
     Dosage: CONTINUOUS
     Route: 042
     Dates: start: 20200603
  7. DALTEPARIN [Suspect]
     Active Substance: DALTEPARIN
     Indication: PULMONARY EMBOLISM
     Route: 065
     Dates: start: 20200526
  8. WARFARIN [Suspect]
     Active Substance: WARFARIN
     Indication: THROMBOSIS
     Dosage: AT BED TIME ON ALTERNATE DAYS
     Route: 048
     Dates: start: 20200527
  9. ONDANSETRON INJECTION USP [Suspect]
     Active Substance: ONDANSETRON
     Indication: NAUSEA
     Route: 042
     Dates: start: 20200601
  10. INSULIN ASPART [Suspect]
     Active Substance: INSULIN ASPART
     Indication: DIABETES MELLITUS
     Dosage: DOSE : 6 UNITS, BEFORE SUPPER
     Route: 058
     Dates: start: 20200527
  11. BISACODYL. [Suspect]
     Active Substance: BISACODYL
     Indication: CONSTIPATION
     Dosage: AS DIRECTED
     Route: 054
     Dates: start: 20200601
  12. MELATONIN [Suspect]
     Active Substance: MELATONIN
     Indication: SLEEP DISORDER THERAPY
     Dosage: AT BED TIME
     Route: 048
     Dates: start: 20200527
  13. HEPARIN SODIUM AND 0.9% SODIUM CHLORIDE INJECTION [Suspect]
     Active Substance: HEPARIN SODIUM\SODIUM CHLORIDE
     Indication: ANTICOAGULANT THERAPY
     Dosage: AS DIRECTED
     Route: 042
     Dates: start: 20200530
  14. ANTICOAGULANT SODIUM CITRATE SOLUTION [Suspect]
     Active Substance: TRISODIUM CITRATE DIHYDRATE
     Indication: THROMBOSIS
     Dosage: AS DIRECTED, BLOCK
     Route: 065
     Dates: start: 20200603
  15. ALLOPURINOL. [Suspect]
     Active Substance: ALLOPURINOL
     Indication: BLOOD URIC ACID INCREASED
     Dosage: MORNING
     Route: 048
     Dates: start: 20200527
  16. LANSOPRAZOLE. [Suspect]
     Active Substance: LANSOPRAZOLE
     Indication: ANTACID THERAPY
     Route: 048
     Dates: start: 20200527
  17. REPLAVITE (PYRIDOXINE HYDROCHLORIDE) [Suspect]
     Active Substance: PYRIDOXINE HYDROCHLORIDE
     Indication: VITAMIN SUPPLEMENTATION
     Dosage: DOSE: 1 TAB MORNING
     Route: 048
     Dates: start: 20200527
  18. LANTHANUM CARBONATE. [Suspect]
     Active Substance: LANTHANUM CARBONATE
     Indication: BLOOD PHOSPHORUS INCREASED
     Dosage: AS DIRECTED
     Route: 048
     Dates: start: 20200527
  19. SIMVASTATIN. [Suspect]
     Active Substance: SIMVASTATIN
     Indication: BLOOD CHOLESTEROL INCREASED
     Dosage: AT BED TIME
     Route: 048
     Dates: start: 20200527
  20. METRONIDAZOLE. [Suspect]
     Active Substance: METRONIDAZOLE
     Indication: BACTERIAL INFECTION
     Route: 048
     Dates: start: 20200530
  21. SALBUTAMOL [Suspect]
     Active Substance: ALBUTEROL
     Indication: CHRONIC OBSTRUCTIVE PULMONARY DISEASE
     Dosage: DOSE: 4 PUFFS
     Route: 055
     Dates: start: 20200601
  22. POLYETHYLENE GLYCOL [Suspect]
     Active Substance: POLYETHYLENE GLYCOLS
     Route: 048
     Dates: start: 20200602
  23. PHYTONADIONE. [Suspect]
     Active Substance: PHYTONADIONE
     Indication: VITAMIN SUPPLEMENTATION
     Dosage: WHEN NEEDED
     Route: 042
     Dates: start: 20200602, end: 20200602
  24. DOBUTAMINE [Suspect]
     Active Substance: DOBUTAMINE HYDROCHLORIDE
     Route: 042
     Dates: start: 20200602
  25. VASOPRESSIN. [Suspect]
     Active Substance: VASOPRESSIN
     Indication: DRUG THERAPY
     Dosage: CONTINUOUS TITRATION
     Route: 042
     Dates: start: 20200602
  26. AMIODARONE [Suspect]
     Active Substance: AMIODARONE
     Indication: VENTRICULAR FIBRILLATION
     Route: 042
     Dates: start: 20200602, end: 20200602
  27. FERRLECIT [Suspect]
     Active Substance: SODIUM FERRIC GLUCONATE COMPLEX
     Indication: IRON DEFICIENCY
     Dosage: DIALYSIS 4 WEEKS
     Route: 042
     Dates: start: 20200527
  28. ONDANSETRON INJECTION USP [Suspect]
     Active Substance: ONDANSETRON
     Indication: VOMITING
  29. NOREPINEPHRINE. [Suspect]
     Active Substance: NOREPINEPHRINE
     Indication: STRESS
     Dosage: CONTINUOUS TITRATION
     Route: 042
     Dates: start: 20200601
  30. UMECLIDINIUM?VILANTEROL [Suspect]
     Active Substance: UMECLIDINIUM BROMIDE\VILANTEROL TRIFENATATE
     Indication: DYSPNOEA
     Dosage: 1 INH, MORNING
     Route: 048
     Dates: start: 20200527
  31. CALCITRIOL. [Suspect]
     Active Substance: CALCITRIOL
     Indication: VITAMIN D
     Dosage: DAILY TTS
     Route: 048
     Dates: start: 20200528
  32. HYDROMORPHONE [Suspect]
     Active Substance: HYDROMORPHONE
     Indication: ANALGESIC THERAPY
     Route: 058
     Dates: start: 20200529
  33. IPRATROPIUM [Suspect]
     Active Substance: IPRATROPIUM
     Indication: DYSPNOEA
     Dosage: DOSE: 4 PUFFS
     Route: 055
     Dates: start: 20200601
  34. SODIUM BIPHOSPHATE/SODIUM PHOSPHATE [Suspect]
     Active Substance: SODIUM PHOSPHATE\SODIUM PHOSPHATE, MONOBASIC, UNSPECIFIED FORM
     Indication: CONSTIPATION
     Dosage: AS DIRECTED
     Route: 054
     Dates: start: 20200601
  35. ARANESP [Suspect]
     Active Substance: DARBEPOETIN ALFA
     Indication: ANAEMIA
     Dosage: EVERY 2 WEEKS
     Route: 042
     Dates: start: 20200528
  36. BETAMETHASONE. [Suspect]
     Active Substance: BETAMETHASONE
     Indication: SWELLING
     Dosage: DOSE: 1 APPLICATION
     Route: 061
     Dates: start: 20200527
  37. GABAPENTIN. [Suspect]
     Active Substance: GABAPENTIN
     Indication: NEURALGIA
     Dosage: AT BED TIME
     Route: 048
     Dates: start: 20200527
  38. CEFTRIAXONE. [Suspect]
     Active Substance: CEFTRIAXONE
     Indication: BACTERIAL INFECTION
     Route: 042
     Dates: start: 20200530
  39. DOBUTAMINE [Suspect]
     Active Substance: DOBUTAMINE HYDROCHLORIDE
     Indication: CARDIOGENIC SHOCK
     Dosage: CONTINOUS
     Route: 042
     Dates: start: 20200601

REACTIONS (14)
  - Appendicitis [Fatal]
  - Nausea [Recovered/Resolved]
  - Constipation [Unknown]
  - Multiple organ dysfunction syndrome [Fatal]
  - Ascites [Unknown]
  - Sepsis [Fatal]
  - Stress [Unknown]
  - Abdominal distension [Unknown]
  - Cardiogenic shock [Unknown]
  - General physical health deterioration [Unknown]
  - Appendicolith [Unknown]
  - Abdominal pain [Unknown]
  - Hyponatraemia [Unknown]
  - Vomiting [Recovered/Resolved]

NARRATIVE: CASE EVENT DATE: 20200601
